FAERS Safety Report 9495606 (Version 3)
Quarter: 2014Q2

REPORT INFORMATION
  Report Type: Spontaneous
  Country: GP (occurrence: GP)
  Receive Date: 20130903
  Receipt Date: 20140528
  Transmission Date: 20141212
  Serious: Yes (Death, Hospitalization, Other)
  Sender: FDA-Public Use
  Company Number: GP-BAUSCH-BL-2013-004806

PATIENT
  Age: 66 Year
  Sex: Male

DRUGS (2)
  1. YELLOX 0.9 MG/ML EYE DROPS, SOLUTION [Suspect]
     Indication: POSTOPERATIVE CARE
     Route: 047
     Dates: start: 201307, end: 201307
  2. YELLOX 0.9 MG/ML EYE DROPS, SOLUTION [Suspect]
     Indication: CATARACT OPERATION

REACTIONS (7)
  - Gastrointestinal haemorrhage [Fatal]
  - Gastrointestinal neoplasm [Fatal]
  - Corneal disorder [Recovered/Resolved]
  - Hypothalamo-pituitary disorder [Unknown]
  - Iridocele [Recovered/Resolved]
  - Gastroduodenal ulcer [Unknown]
  - Ulcerative keratitis [Recovered/Resolved]
